FAERS Safety Report 23999915 (Version 1)
Quarter: 2024Q2

REPORT INFORMATION
  Report Type: Spontaneous
  Country: US (occurrence: None)
  Receive Date: 20240620
  Receipt Date: 20240620
  Transmission Date: 20240716
  Serious: Yes (Hospitalization)
  Sender: FDA-Public Use
  Company Number: None

PATIENT
  Age: 44 Year
  Sex: Female
  Weight: 121.5 kg

DRUGS (1)
  1. WEGOVY [Suspect]
     Active Substance: SEMAGLUTIDE
     Indication: Weight decreased
     Dates: start: 20240619

REACTIONS (6)
  - Fatigue [None]
  - Dizziness [None]
  - Nausea [None]
  - Blood glucose decreased [None]
  - Vomiting [None]
  - Therapy interrupted [None]

NARRATIVE: CASE EVENT DATE: 20240619
